FAERS Safety Report 7383860-4 (Version None)
Quarter: 2011Q1

REPORT INFORMATION
  Report Type: 
  Country: None (occurrence: None)
  Receive Date: 20110322
  Receipt Date: 20110309
  Transmission Date: 20110831
  Serious: Yes (Hospitalization)
  Sender: FDA-Public Use
  Company Number: FK201100421

PATIENT
  Age: 41 Year
  Sex: Male
  Weight: 76.5 kg

DRUGS (8)
  1. EFAVIRENZ [Concomitant]
  2. VANCOMYCIN HYDROCHLORIDE [Suspect]
     Indication: ANTIBIOTIC THERAPY
     Dosage: 1 GM Q12H, INTRAVENOUS
     Route: 042
     Dates: start: 20110303
  3. CALCIUM CARBONATE [Concomitant]
  4. JEORA *KEVETURACETAM) [Concomitant]
  5. VITAMIN D [Concomitant]
  6. SEPTRA DS [Concomitant]
  7. KIVEXA (ABACAVIR SULFATE W/LAMIVUDINE) [Concomitant]
  8. VALACYCLOVIR [Concomitant]

REACTIONS (4)
  - RASH PRURITIC [None]
  - HYPOTENSION [None]
  - TACHYCARDIA [None]
  - PYREXIA [None]
